FAERS Safety Report 11538727 (Version 5)
Quarter: 2015Q4

REPORT INFORMATION
  Report Type: Spontaneous
  Country: JP (occurrence: JP)
  Receive Date: 20150923
  Receipt Date: 20151111
  Transmission Date: 20160304
  Serious: Yes (Other)
  Sender: FDA-Public Use
  Company Number: JP-PFIZER INC-2015305706

PATIENT
  Age: 70 Year
  Sex: Male
  Weight: 58.7 kg

DRUGS (6)
  1. XALKORI [Suspect]
     Active Substance: CRIZOTINIB
     Indication: NON-SMALL CELL LUNG CANCER
     Dosage: 250 MG, 2X/DAY
     Route: 048
     Dates: start: 20150902, end: 20150908
  2. XALKORI [Suspect]
     Active Substance: CRIZOTINIB
     Dosage: 200 MG, DAILY
     Route: 048
     Dates: start: 20151014, end: 20151028
  3. LOBU [Suspect]
     Active Substance: LOBUCAVIR
     Indication: HEADACHE
     Dosage: 60 MG, AS NEEDED
     Route: 048
     Dates: start: 20150830, end: 20150909
  4. LYRICA [Suspect]
     Active Substance: PREGABALIN
     Indication: HEADACHE
     Dosage: 300 MG, 2X/DAY
     Route: 048
     Dates: start: 20150829, end: 20150908
  5. BLOPRESS [Suspect]
     Active Substance: CANDESARTAN CILEXETIL
     Indication: RENAL IMPAIRMENT
     Dosage: 8 MG, 1X/DAY
     Route: 048
     Dates: end: 20150909
  6. PROHANCE [Suspect]
     Active Substance: GADOTERIDOL
     Indication: NUCLEAR MAGNETIC RESONANCE IMAGING BRAIN
     Dosage: 13 ML, SINGLE
     Route: 042
     Dates: start: 20150828, end: 20150828

REACTIONS (5)
  - Dysgeusia [Not Recovered/Not Resolved]
  - Bradycardia [Recovering/Resolving]
  - Renal impairment [Recovering/Resolving]
  - Oedema [Not Recovered/Not Resolved]
  - Visual impairment [Recovered/Resolved]

NARRATIVE: CASE EVENT DATE: 20150902
